FAERS Safety Report 10300451 (Version 2)
Quarter: 2014Q3

REPORT INFORMATION
  Report Type: Spontaneous
  Country: DK (occurrence: DK)
  Receive Date: 20140713
  Receipt Date: 20140713
  Transmission Date: 20150326
  Serious: Yes (Hospitalization)
  Sender: FDA-Public Use
  Company Number: PHHY2014DK083364

PATIENT
  Age: 18 Year
  Sex: Female

DRUGS (5)
  1. VALPROIC ACID. [Suspect]
     Active Substance: VALPROIC ACID
     Indication: NEURONAL CEROID LIPOFUSCINOSIS
     Dosage: 1000 MG, PER 24HRS
  2. VALPROIC ACID. [Suspect]
     Active Substance: VALPROIC ACID
     Dosage: 500 MG, PER 24HRS
  3. VALPROIC ACID. [Suspect]
     Active Substance: VALPROIC ACID
     Dosage: 1500 MG, PER 24HRS
  4. OXCARBAZEPINE. [Suspect]
     Active Substance: OXCARBAZEPINE
     Indication: NEURONAL CEROID LIPOFUSCINOSIS
     Dosage: 2100 MG/KG, PER 24H
  5. TOPIRAMATE. [Suspect]
     Active Substance: TOPIRAMATE
     Indication: NEURONAL CEROID LIPOFUSCINOSIS
     Dosage: 350 MG/KG, PER 24 H

REACTIONS (4)
  - Hyperammonaemic encephalopathy [Recovered/Resolved]
  - Somnolence [Recovered/Resolved]
  - Lethargy [Recovered/Resolved]
  - Hyperammonaemia [Recovered/Resolved]
